FAERS Safety Report 8399160-X (Version None)
Quarter: 2012Q1

REPORT INFORMATION
  Report Type: 
  Country: None (occurrence: None)
  Receive Date: 20120323
  Receipt Date: 20110107
  Transmission Date: 20120608
  Serious: Yes (Disabling)
  Sender: FDA-Public Use
  Company Number: 163-21880-11010728

PATIENT
  Sex: Male

DRUGS (9)
  1. LASIX [Concomitant]
  2. REVLIMID [Suspect]
     Indication: MULTIPLE MYELOMA
     Dosage: 10 MG, 1 IN 1 D, PO
     Route: 048
     Dates: start: 20101001
  3. WARFARIN SODIUM [Concomitant]
  4. PERCOCET [Concomitant]
  5. GABAPENTIN [Concomitant]
  6. METOPROLOL TARTRATE [Concomitant]
  7. MORPHINE SULFATE INJ [Concomitant]
  8. SODIUM BICARBONATE IN PLASTIC CONTAINER [Concomitant]
  9. ASPIRIN [Concomitant]

REACTIONS (1)
  - OEDEMA PERIPHERAL [None]
